FAERS Safety Report 26100693 (Version 1)
Quarter: 2025Q4

REPORT INFORMATION
  Report Type: Spontaneous
  Country: US (occurrence: US)
  Receive Date: 20251128
  Receipt Date: 20251128
  Transmission Date: 20260118
  Serious: No
  Sender: STALLERGENES
  Company Number: US-STALCOR-2025-AER-02943

PATIENT
  Sex: Male

DRUGS (3)
  1. PALFORZIA [Suspect]
     Active Substance: PEANUT
     Indication: Food allergy
     Dosage: MIX CONTENTS OF CAPSULE(S) WELL WITH SEMISOLID FOOD AS DIRECTED AND CONSUME ONCE DAILY AT APPROXIMAT
     Route: 048
     Dates: start: 20250927
  2. FLUTICASONE [Concomitant]
     Active Substance: FLUTICASONE
     Indication: Product used for unknown indication
  3. ZYRTEC [Concomitant]
     Active Substance: CETIRIZINE HYDROCHLORIDE
     Indication: Product used for unknown indication
     Dosage: SOLUTION 5MILLIGRAM/5MILLILITER

REACTIONS (1)
  - Therapy interrupted [Not Recovered/Not Resolved]
